FAERS Safety Report 16756495 (Version 2)
Quarter: 2020Q1

REPORT INFORMATION
  Report Type: Other
  Country: CA (occurrence: CA)
  Receive Date: 20190829
  Receipt Date: 20200204
  Transmission Date: 20200409
  Serious: Yes (Other)
  Sender: FDA-Public Use
  Company Number: CA-COLGATE PALMOLIVE COMPANY-20190802162

PATIENT

DRUGS (9)
  1. ACETYLSALICYLIC ACID [Suspect]
     Active Substance: ASPIRIN
     Dosage: UNK
     Route: 064
  2. NIFEDIPINE. [Suspect]
     Active Substance: NIFEDIPINE
     Dosage: UNK
     Route: 064
  3. METHYLDOPA. [Suspect]
     Active Substance: METHYLDOPA
     Dosage: UNK
     Route: 064
  4. SILDENAFIL. [Suspect]
     Active Substance: SILDENAFIL
     Dosage: UNK
     Route: 064
  5. INSULIN [Suspect]
     Active Substance: INSULIN NOS
     Dosage: UNK
     Route: 064
  6. METFORMIN [Suspect]
     Active Substance: METFORMIN HYDROCHLORIDE
     Dosage: UNK
     Route: 064
  7. DICLECTIN [Suspect]
     Active Substance: DOXYLAMINE SUCCINATE\PYRIDOXINE HYDROCHLORIDE
     Dosage: UNK
     Route: 064
  8. CHLORHEXIDINE UNSPECIFIED [Suspect]
     Active Substance: CHLORHEXIDINE
     Dosage: UNK
     Route: 064
  9. SILDENAFIL. [Suspect]
     Active Substance: SILDENAFIL
     Dosage: UNK

REACTIONS (2)
  - Premature baby [Unknown]
  - Foetal exposure during pregnancy [Unknown]
